FAERS Safety Report 9223733 (Version 1)
Quarter: 2013Q2

REPORT INFORMATION
  Report Type: Spontaneous
  Country: US (occurrence: US)
  Receive Date: 20130410
  Receipt Date: 20130410
  Transmission Date: 20140414
  Serious: Yes (Hospitalization)
  Sender: FDA-Public Use
  Company Number: US-GILEAD-2013-0073227

PATIENT
  Sex: Male

DRUGS (2)
  1. LETAIRIS [Suspect]
     Indication: PRODUCT USED FOR UNKNOWN INDICATION
     Dosage: 10 MG, QD
     Dates: start: 20091104
  2. WARFARIN [Concomitant]

REACTIONS (4)
  - Catheterisation cardiac [Unknown]
  - Pyrexia [Unknown]
  - Delusion [Unknown]
  - Fluid retention [Unknown]
